FAERS Safety Report 10193265 (Version 1)
Quarter: 2014Q2

REPORT INFORMATION
  Report Type: Spontaneous
  Country: US (occurrence: US)
  Receive Date: 20140524
  Receipt Date: 20140524
  Transmission Date: 20141212
  Serious: No
  Sender: FDA-Public Use
  Company Number: US-SA-2013SA111103

PATIENT
  Age: 65 Year
  Sex: Female

DRUGS (6)
  1. LANTUS SOLOSTAR [Suspect]
     Indication: TYPE 2 DIABETES MELLITUS
     Dosage: 30/15 UNITS BID DOSE:45 UNIT(S)
     Route: 051
     Dates: start: 2009
  2. LANTUS SOLOSTAR [Suspect]
     Indication: TYPE 2 DIABETES MELLITUS
     Dosage: 30/15 UNITS BID DOSE:45 UNIT(S)
     Route: 051
     Dates: start: 2009
  3. LANTUS SOLOSTAR [Suspect]
     Indication: TYPE 2 DIABETES MELLITUS
     Dosage: 30/15 UNITS BID DOSE:45 UNIT(S)
     Route: 051
     Dates: start: 2009
  4. SOLOSTAR [Concomitant]
  5. HUMALOG [Concomitant]
  6. ACARBOSE [Concomitant]
     Route: 065

REACTIONS (6)
  - Visual impairment [Unknown]
  - Blood glucose abnormal [Unknown]
  - Blood glucose increased [Unknown]
  - Drug ineffective [Unknown]
  - Headache [Unknown]
  - Injection site hypoaesthesia [Not Recovered/Not Resolved]
